FAERS Safety Report 5280709-0 (Version None)
Quarter: 2007Q1

REPORT INFORMATION
  Report Type: 
  Country: None (occurrence: None)
  Receive Date: 20061221
  Receipt Date: 20061006
  Transmission Date: 20070707
  Serious: No
  Sender: FDA-Public Use
  Company Number: US-CVT-062029

PATIENT
  Age: 74 Year
  Sex: Female

DRUGS (7)
  1. RANEXA [Suspect]
     Indication: ANGINA PECTORIS
     Dosage: 500 MG, BID, ORAL
     Route: 048
     Dates: start: 20060914, end: 20060916
  2. RANEXA [Suspect]
     Indication: ANGINA PECTORIS
     Dosage: 500 MG, BID, ORAL
     Route: 048
     Dates: start: 20060918, end: 20060923
  3. IMDUR [Concomitant]
  4. LIPITOR /01326101/ (ATORVASTATIN) [Concomitant]
  5. ASPIRIN [Concomitant]
  6. ACEON [Concomitant]
  7. TOPROL-XL [Concomitant]

REACTIONS (2)
  - DYSPEPSIA [None]
  - FLATULENCE [None]
